FAERS Safety Report 8345780-8 (Version None)
Quarter: 2012Q2

REPORT INFORMATION
  Report Type: 
  Country: None (occurrence: None)
  Receive Date: 20120508
  Receipt Date: 20120425
  Transmission Date: 20120825
  Serious: Yes (Other)
  Sender: FDA-Public Use
  Company Number: BE-MYLANLABS-2012S1008636

PATIENT
  Sex: Female

DRUGS (1)
  1. METFORMIN HCL [Suspect]
     Indication: DIABETES MELLITUS
     Dosage: 1 AND/OR 2
     Route: 048
     Dates: start: 20120202, end: 20120301

REACTIONS (10)
  - ANHEDONIA [None]
  - ALTERED VISUAL DEPTH PERCEPTION [None]
  - CONSTIPATION [None]
  - PERSONALITY DISORDER [None]
  - ABDOMINAL DISCOMFORT [None]
  - HICCUPS [None]
  - PATIENT ISOLATION [None]
  - DEPERSONALISATION [None]
  - DYSPNOEA [None]
  - INDIFFERENCE [None]
